FAERS Safety Report 4595248-X (Version None)
Quarter: 2005Q1

REPORT INFORMATION
  Report Type: 
  Country: None (occurrence: None)
  Receive Date: 20050225
  Receipt Date: 20050211
  Transmission Date: 20050727
  Serious: Yes (Hospitalization)
  Sender: FDA-Public Use
  Company Number: 2005UW02449

PATIENT
  Age: 68 Year
  Sex: Male

DRUGS (1)
  1. CRESTOR [Suspect]
     Indication: BLOOD CHOLESTEROL INCREASED
     Dosage: 10 MG PO
     Route: 048
     Dates: start: 20031111, end: 20040101

REACTIONS (5)
  - ABASIA [None]
  - ASTHENIA [None]
  - MUSCLE ATROPHY [None]
  - MYALGIA [None]
  - NEUROPATHIC PAIN [None]
